FAERS Safety Report 11693078 (Version 1)
Quarter: 2015Q4

REPORT INFORMATION
  Report Type: Spontaneous
  Country: US (occurrence: US)
  Receive Date: 20151103
  Receipt Date: 20151103
  Transmission Date: 20160304
  Serious: Yes (Disabling, Other)
  Sender: FDA-Public Use
  Company Number: US-ELI_LILLY_AND_COMPANY-US201510008093

PATIENT
  Sex: Female

DRUGS (4)
  1. INSULIN HUMAN [Suspect]
     Active Substance: INSULIN HUMAN
     Indication: PRODUCT USED FOR UNKNOWN INDICATION
  2. LEVEMIR [Concomitant]
     Active Substance: INSULIN DETEMIR
  3. NOVOLOG [Concomitant]
     Active Substance: INSULIN ASPART
  4. ILETIN BEEF/PORK LENTE [Suspect]
     Active Substance: INSULIN BEEF/PORK
     Indication: PRODUCT USED FOR UNKNOWN INDICATION

REACTIONS (6)
  - Drug hypersensitivity [Unknown]
  - Visual acuity reduced [Unknown]
  - Limb injury [Unknown]
  - Blindness [Unknown]
  - Retinal haemorrhage [Unknown]
  - Conjunctival scar [Unknown]

NARRATIVE: CASE EVENT DATE: 1992
